FAERS Safety Report 8171662-0 (Version None)
Quarter: 2012Q1

REPORT INFORMATION
  Report Type: 
  Country: None (occurrence: None)
  Receive Date: 20120228
  Receipt Date: 20120222
  Transmission Date: 20120608
  Serious: Yes (Other)
  Sender: FDA-Public Use
  Company Number: US-AMGEN-USASP2012011851

PATIENT
  Age: 21 Year
  Sex: Female

DRUGS (10)
  1. LEUCOVORIN CALCIUM [Suspect]
     Indication: OSTEOSARCOMA METASTATIC
     Dosage: 15 MG, Q6H
  2. MESNA [Suspect]
     Indication: OSTEOSARCOMA METASTATIC
     Dosage: 360 MG/M2, UNK
     Route: 042
  3. IFOSFAMIDE [Suspect]
     Indication: OSTEOSARCOMA METASTATIC
     Dosage: 2.8 G/M2, UNK
     Route: 042
  4. METHOTREXATE [Suspect]
     Indication: OSTEOSARCOMA METASTATIC
     Dosage: 12 G/M2, UNK
     Route: 042
  5. ETOPOSIDE [Suspect]
     Indication: OSTEOSARCOMA METASTATIC
     Dosage: 100 MG/M2, UNK
     Route: 042
  6. FILGRASTIM [Suspect]
     Indication: OSTEOSARCOMA METASTATIC
     Dosage: 5 MUG/KG, QD
     Route: 058
  7. DOXORUBICIN HCL [Suspect]
     Indication: OSTEOSARCOMA METASTATIC
     Dosage: 37.5 MG/M2, UNK
     Route: 042
     Dates: start: 20030930
  8. DEXRAZOXANE HYDROCHLORIDE [Suspect]
     Indication: OSTEOSARCOMA METASTATIC
     Dosage: 375 MG/M2, UNK
     Route: 042
     Dates: start: 20030930
  9. CISPLATIN [Suspect]
     Indication: OSTEOSARCOMA METASTATIC
     Dosage: 60 MG/M2, UNK
     Route: 042
     Dates: start: 20030930
  10. TRASTUZUMAB [Suspect]
     Indication: OSTEOSARCOMA METASTATIC
     Dosage: 4 MG/KG, UNK
     Route: 042
     Dates: start: 20030930, end: 20030930

REACTIONS (3)
  - PRESYNCOPE [None]
  - DEHYDRATION [None]
  - HYPONATRAEMIA [None]
